FAERS Safety Report 19088548 (Version 1)
Quarter: 2021Q2

REPORT INFORMATION
  Report Type: Spontaneous
  Country: NZ (occurrence: NZ)
  Receive Date: 20210402
  Receipt Date: 20210402
  Transmission Date: 20210717
  Serious: Yes (Death, Life-Threatening, Hospitalization, Other)
  Sender: FDA-Public Use
  Company Number: NZ-VALIDUS PHARMACEUTICALS LLC-NZ-2021VAL000575

PATIENT
  Age: 5 Month
  Sex: Male

DRUGS (9)
  1. CEFOTAXIME SODIUM [Suspect]
     Active Substance: CEFOTAXIME SODIUM
     Indication: PRODUCT USED FOR UNKNOWN INDICATION
     Dosage: UNK
     Route: 065
  2. METHYLPREDNISOLONE. [Suspect]
     Active Substance: METHYLPREDNISOLONE
     Indication: IMMUNOSUPPRESSION
     Dosage: UNK
     Route: 065
  3. AMPHOTERICIN [Concomitant]
     Active Substance: AMPHOTERICIN B
     Indication: PRODUCT USED FOR UNKNOWN INDICATION
     Dosage: UNK
     Route: 065
  4. ADENOSINE. [Suspect]
     Active Substance: ADENOSINE
     Indication: ATRIAL FIBRILLATION
     Dosage: UNK
     Route: 040
  5. AMOXICILLIN. [Suspect]
     Active Substance: AMOXICILLIN
     Indication: PYREXIA
     Dosage: UNK
     Route: 065
  6. GENTAMICIN SULFATE. [Suspect]
     Active Substance: GENTAMICIN SULFATE
     Indication: PRODUCT USED FOR UNKNOWN INDICATION
     Dosage: UNK
     Route: 065
  7. AMIKACIN. [Suspect]
     Active Substance: AMIKACIN
     Indication: PRODUCT USED FOR UNKNOWN INDICATION
     Dosage: UNK
     Route: 065
  8. TACROLIMUS. [Suspect]
     Active Substance: TACROLIMUS
     Indication: IMMUNOSUPPRESSION
     Dosage: UNK
     Route: 065
  9. ADENOSINE. [Suspect]
     Active Substance: ADENOSINE
     Indication: PYREXIA

REACTIONS (8)
  - Serratia infection [Fatal]
  - Hepatic failure [Fatal]
  - Atrial fibrillation [Fatal]
  - Off label use [Fatal]
  - Portal vein thrombosis [Fatal]
  - Condition aggravated [Fatal]
  - Hyperammonaemia [Fatal]
  - Gastric varices haemorrhage [Fatal]
